FAERS Safety Report 24188367 (Version 1)
Quarter: 2024Q3

REPORT INFORMATION
  Report Type: Spontaneous
  Country: US (occurrence: US)
  Receive Date: 20240808
  Receipt Date: 20240808
  Transmission Date: 20241017
  Serious: No
  Sender: OTSUKA
  Company Number: US-OTSUKA-2023_028058

PATIENT
  Age: 31 Year
  Sex: Male
  Weight: 91.17 kg

DRUGS (1)
  1. ARIPIPRAZOLE [Suspect]
     Active Substance: ARIPIPRAZOLE
     Indication: Product used for unknown indication
     Dosage: 10 MG (HALF TABLET AT BEDTIME)
     Route: 048
     Dates: start: 20231011, end: 20231019

REACTIONS (4)
  - Impaired quality of life [Unknown]
  - Amnesia [Not Recovered/Not Resolved]
  - Therapy change [Unknown]
  - Wrong technique in product usage process [Unknown]

NARRATIVE: CASE EVENT DATE: 20231019
